FAERS Safety Report 4690663-8 (Version None)
Quarter: 2005Q2

REPORT INFORMATION
  Report Type: 
  Country: None (occurrence: None)
  Receive Date: 20050615
  Receipt Date: 20050609
  Transmission Date: 20051028
  Serious: Yes (Death, Hospitalization)
  Sender: FDA-Public Use
  Company Number: HCM-0088

PATIENT
  Age: 64 Year
  Sex: Male

DRUGS (14)
  1. HYCAMTIN [Suspect]
     Indication: SMALL CELL LUNG CANCER STAGE UNSPECIFIED
     Dosage: .9MG PER DAY
     Route: 042
     Dates: start: 20040322, end: 20040326
  2. CARBOPLATIN [Concomitant]
     Dosage: 545MG PER DAY
     Route: 042
     Dates: start: 20040321, end: 20040321
  3. MORPHINE SULFATE [Concomitant]
     Route: 048
     Dates: start: 20040330, end: 20040503
  4. LOXOPROFEN SODIUM [Concomitant]
     Dosage: 60MG PER DAY
     Route: 048
     Dates: start: 20040331, end: 20040401
  5. TEPRENONE [Concomitant]
     Dosage: .5MG PER DAY
     Route: 048
     Dates: start: 20040331, end: 20040331
  6. BETAMETHASONE [Concomitant]
     Dosage: 2MG PER DAY
     Route: 048
     Dates: start: 20040319, end: 20040430
  7. RANITIDINE HYDROCHLORIDE [Concomitant]
     Dosage: 2TAB PER DAY
     Route: 048
     Dates: start: 20040319, end: 20040430
  8. MUCOSTA [Concomitant]
     Dosage: 2TAB PER DAY
     Route: 048
     Dates: start: 20040319, end: 20040430
  9. ALLOPURINOL [Concomitant]
     Dosage: 1TAB PER DAY
     Route: 048
     Dates: start: 20040319, end: 20040430
  10. MAGNESIUM OXIDE [Concomitant]
     Dosage: 6TAB PER DAY
     Route: 048
     Dates: start: 20040319, end: 20040430
  11. PROCHLORPERAZINE MALEATE [Concomitant]
     Dosage: 4TAB PER DAY
     Route: 048
     Dates: start: 20040319, end: 20040430
  12. GLICLAZIDE [Concomitant]
     Dosage: 1TAB PER DAY
     Route: 048
     Dates: start: 20040405, end: 20040415
  13. FLUID REPLACEMENT [Concomitant]
     Dosage: 500ML PER DAY
     Route: 042
     Dates: start: 20040502, end: 20040504
  14. ISOTONIC SODIUM CHLORIDE [Concomitant]
     Dosage: 40ML PER DAY
     Route: 042
     Dates: start: 20040502, end: 20040504

REACTIONS (7)
  - DIZZINESS [None]
  - FALL [None]
  - HEPATIC FUNCTION ABNORMAL [None]
  - METASTASES TO LIVER [None]
  - NEUTROPHIL COUNT DECREASED [None]
  - PLATELET COUNT DECREASED [None]
  - WHITE BLOOD CELL COUNT DECREASED [None]
